FAERS Safety Report 8601420-1 (Version None)
Quarter: 2012Q3

REPORT INFORMATION
  Report Type: 
  Country: None (occurrence: None)
  Receive Date: 20120817
  Receipt Date: 20110629
  Transmission Date: 20120928
  Serious: No
  Sender: FDA-Public Use
  Company Number: US-BRISTOL-MYERS SQUIBB COMPANY-15863665

PATIENT
  Age: 49 Year
  Sex: Male
  Weight: 97 kg

DRUGS (4)
  1. CLONAZEPAM [Concomitant]
     Indication: RESTLESS LEGS SYNDROME
  2. SPRYCEL [Suspect]
     Dates: start: 20110601
  3. PHENERGAN HCL [Concomitant]
  4. CLONAZEPAM [Concomitant]
     Indication: ANXIETY

REACTIONS (2)
  - ABDOMINAL DISCOMFORT [None]
  - HEADACHE [None]
